FAERS Safety Report 5466129-4 (Version None)
Quarter: 2007Q3

REPORT INFORMATION
  Report Type: 
  Country: None (occurrence: None)
  Receive Date: 20070919
  Receipt Date: 20070608
  Transmission Date: 20080115
  Serious: Yes (Other)
  Sender: FDA-Public Use
  Company Number: GXKR2007GB05047

PATIENT
  Age: 53 Year
  Sex: Male

DRUGS (5)
  1. CITALOPRAM HYDROBROMIDE [Suspect]
     Dosage: 20 MG, ORAL; 40 MG, ORAL
     Route: 048
     Dates: start: 20060501, end: 20061201
  2. ASPIRIN [Concomitant]
  3. METFORMIN HCL [Concomitant]
  4. PRAVASTATIN [Concomitant]
  5. SILDENAFIL CITRATE [Concomitant]

REACTIONS (1)
  - NIGHTMARE [None]
